FAERS Safety Report 7457377-2 (Version None)
Quarter: 2011Q2

REPORT INFORMATION
  Report Type: 
  Country: None (occurrence: None)
  Receive Date: 20110504
  Receipt Date: 20100624
  Transmission Date: 20111010
  Serious: No
  Sender: FDA-Public Use
  Company Number: US-SANOFI-AVENTIS-2010SA037494

PATIENT
  Sex: Female
  Weight: 97.52 kg

DRUGS (2)
  1. LANTUS [Suspect]
  2. APIDRA [Suspect]
     Dosage: 15-20UNITS WITH MEALS, SOMTIMES MORE WITH BREAKFAST
     Route: 058

REACTIONS (6)
  - INJECTION SITE HAEMORRHAGE [None]
  - INJECTION SITE HAEMATOMA [None]
  - MEDICATION ERROR [None]
  - INJURY ASSOCIATED WITH DEVICE [None]
  - WEIGHT INCREASED [None]
  - BLOOD GLUCOSE INCREASED [None]
